FAERS Safety Report 5888132-2 (Version None)
Quarter: 2008Q3

REPORT INFORMATION
  Report Type: 
  Country: None (occurrence: None)
  Receive Date: 20080916
  Receipt Date: 20080916
  Transmission Date: 20090109
  Serious: Yes (Other)
  Sender: FDA-Public Use
  Company Number: None

PATIENT
  Age: 48 Year
  Sex: Female
  Weight: 90.7194 kg

DRUGS (1)
  1. PREDNISONE [Suspect]
     Indication: FIBROMYALGIA
     Dosage: FROM 6-2 STARTING  DAILY  BUCCAL
     Route: 002

REACTIONS (4)
  - COLD SWEAT [None]
  - HEADACHE [None]
  - HYPOAESTHESIA FACIAL [None]
  - TREMOR [None]
